FAERS Safety Report 9707212 (Version 1)
Quarter: 2013Q4

REPORT INFORMATION
  Report Type: Spontaneous
  Country: US (occurrence: None)
  Receive Date: 20131122
  Receipt Date: 20131122
  Transmission Date: 20140711
  Serious: No
  Sender: FDA-Public Use
  Company Number: None

PATIENT
  Age: 77 Year
  Sex: Male

DRUGS (1)
  1. CLONIDINE [Suspect]
     Dosage: 4^ SQ.APPLY ON EPATCH TO HAIRLESS AREA ON UPPER...

REACTIONS (2)
  - Product quality issue [None]
  - Product substitution issue [None]
